FAERS Safety Report 7205502-0 (Version None)
Quarter: 2010Q4

REPORT INFORMATION
  Report Type: 
  Country: None (occurrence: None)
  Receive Date: 20101231
  Receipt Date: 20101221
  Transmission Date: 20110411
  Serious: Yes (Other)
  Sender: FDA-Public Use
  Company Number: PHHY2010BE82180

PATIENT
  Sex: Female

DRUGS (5)
  1. RITALIN [Suspect]
     Indication: ATTENTION DEFICIT/HYPERACTIVITY DISORDER
     Dosage: 2 DF, QD (40 MG DAILY)
  2. SEROQUEL [Suspect]
     Dosage: 225 MG, QD
  3. TRUXAL [Suspect]
     Dosage: 150 MG, QD
  4. TRAZOLAN [Concomitant]
     Dosage: 100 MG, QD
  5. ABILIFY [Concomitant]
     Dosage: 10 MG, QD

REACTIONS (1)
  - SUICIDAL IDEATION [None]
